FAERS Safety Report 6202763-1 (Version None)
Quarter: 2009Q2

REPORT INFORMATION
  Report Type: 
  Country: None (occurrence: None)
  Receive Date: 20090526
  Receipt Date: 20090514
  Transmission Date: 20091009
  Serious: Yes (Hospitalization)
  Sender: FDA-Public Use
  Company Number: US-PFIZER INC-2009164423

PATIENT
  Sex: Male
  Weight: 29.2 kg

DRUGS (26)
  1. BLINDED *PLACEBO [Suspect]
     Indication: CYSTIC FIBROSIS
     Dosage: 250 MG THREE TIMES WEEKLY
     Route: 048
     Dates: start: 20081113
  2. BLINDED AZITHROMYCIN [Suspect]
     Indication: CYSTIC FIBROSIS
     Dosage: 250 MG THREE TIMES WEEKLY
     Route: 048
     Dates: start: 20081113
  3. BLINDED AZITHROMYCIN [Suspect]
     Dosage: 250 MG THREE TIMES WEEKLY
     Route: 048
     Dates: start: 20081113
  4. FLOVENT [Concomitant]
  5. HYPERTONIC SALINE [Concomitant]
  6. XOPENEX [Concomitant]
  7. PULMOZYME [Concomitant]
  8. ALL OTHER THERAPEUTIC PRODUCTS [Concomitant]
  9. CREON [Concomitant]
  10. NUTREN 1.0 LIQUID [Concomitant]
  11. GENERAL NUTRIENTS/VITAMINS NOS [Concomitant]
  12. FIBRE, DIETARY [Concomitant]
  13. LEVOTHYROXINE [Concomitant]
  14. PREVACID [Concomitant]
  15. RITALIN [Concomitant]
  16. CONCERTA [Concomitant]
  17. METHYLPHENIDATE [Concomitant]
  18. TRILEPTAL [Concomitant]
  19. LITHIUM CARBONATE [Concomitant]
  20. CITALOPRAM [Concomitant]
  21. ADEK-FALK [Concomitant]
  22. ANAESTHETICS, LOCAL [Concomitant]
  23. HEPARIN [Concomitant]
  24. FLUTICASONE [Concomitant]
  25. LORTAB [Concomitant]
  26. ERYTHROMYCIN STEARATE [Concomitant]

REACTIONS (2)
  - ABDOMINAL PAIN [None]
  - COSTOCHONDRITIS [None]
